FAERS Safety Report 13759481 (Version 2)
Quarter: 2017Q3

REPORT INFORMATION
  Report Type: Spontaneous
  Country: FR (occurrence: FR)
  Receive Date: 20170717
  Receipt Date: 20170727
  Transmission Date: 20171127
  Serious: Yes (Hospitalization, Other)
  Sender: FDA-Public Use
  Company Number: FR-PFIZER INC-2017301701

PATIENT
  Age: 92 Year
  Sex: Female

DRUGS (9)
  1. XALKORI [Suspect]
     Active Substance: CRIZOTINIB
     Dosage: 250 MG, ONCE DAILY
     Route: 048
     Dates: end: 20160706
  2. SIMVASTATIN. [Concomitant]
     Active Substance: SIMVASTATIN
     Dosage: 20 MG, DAILY
  3. XALKORI [Suspect]
     Active Substance: CRIZOTINIB
     Indication: BRONCHIAL CARCINOMA
     Dosage: 250MG, TWICE DAILY, MORNING AND EVENING
     Route: 048
     Dates: start: 20160128, end: 20160622
  4. XALKORI [Suspect]
     Active Substance: CRIZOTINIB
     Dosage: 200 MG, ONCE DAILY
     Route: 048
  5. AMLOR [Concomitant]
     Active Substance: AMLODIPINE BESYLATE
     Dosage: 10 MG, UNK
  6. PANTOPRAZOLE [Concomitant]
     Active Substance: PANTOPRAZOLE
     Dosage: 1 DF, DAILY
  7. KARDEGIC [Concomitant]
     Active Substance: ASPIRIN LYSINE
     Dosage: 75MG DAILY AT NOON
  8. SEROPLEX [Concomitant]
     Active Substance: ESCITALOPRAM OXALATE
     Dosage: 1.5 TABLETS, DAILY IN THE MORNING
  9. OROZAMUDOL [Concomitant]
     Active Substance: TRAMADOL
     Dosage: 1 DF, 3X/DAY, MORNING, NOON AND EVENING

REACTIONS (12)
  - Nausea [Unknown]
  - Dysgeusia [Unknown]
  - Decreased appetite [Unknown]
  - Skin lesion [Unknown]
  - Weight decreased [Unknown]
  - Diarrhoea [Recovered/Resolved]
  - Hepatocellular injury [Unknown]
  - Transaminases increased [Recovered/Resolved]
  - Abdominal pain [Unknown]
  - Erythema [Recovered/Resolved]
  - Vitreous floaters [Unknown]
  - Asthenia [Recovered/Resolved]

NARRATIVE: CASE EVENT DATE: 201603
